FAERS Safety Report 5964622-9 (Version None)
Quarter: 2008Q4

REPORT INFORMATION
  Report Type: 
  Country: None (occurrence: None)
  Receive Date: 20081124
  Receipt Date: 20081124
  Transmission Date: 20090506
  Serious: Yes (Other)
  Sender: FDA-Public Use
  Company Number: None

PATIENT
  Age: 47 Year
  Sex: Female
  Weight: 70 kg

DRUGS (5)
  1. ELIDEL [Suspect]
     Indication: ECZEMA
     Dosage: 1% CREAM AS DIRECTED TOPICALLY
     Route: 061
     Dates: start: 20030407
  2. ELIDEL [Suspect]
     Indication: ECZEMA
     Dosage: 1% CREAM AS DIRECTED TOPICALLY
     Route: 061
     Dates: start: 20061031
  3. TAMOXIFEN [Concomitant]
  4. CITALOPRAM HYDROBROMIDE [Suspect]
  5. FLONASE [Concomitant]

REACTIONS (1)
  - HODGKIN'S DISEASE [None]
